FAERS Safety Report 16051876 (Version 2)
Quarter: 2019Q1

REPORT INFORMATION
  Report Type: Spontaneous
  Country: GB (occurrence: GB)
  Receive Date: 20190308
  Receipt Date: 20190319
  Transmission Date: 20190418
  Serious: Yes (Hospitalization)
  Sender: FDA-Public Use
  Company Number: GB-TEVA-2019-GB-1019157

PATIENT
  Age: 60 Year

DRUGS (6)
  1. OMEPRAZOLE. [Suspect]
     Active Substance: OMEPRAZOLE
     Dosage: 40 MILLIGRAM DAILY;
  2. PROPRANOLOL [Concomitant]
     Active Substance: PROPRANOLOL HYDROCHLORIDE
     Dosage: 40 MILLIGRAM DAILY;
  3. AMLODIPINE [Concomitant]
     Active Substance: AMLODIPINE BESYLATE
     Dosage: 10 MILLIGRAM DAILY;
  4. LOPERAMIDE [Concomitant]
     Active Substance: LOPERAMIDE
  5. SERTRALINE [Suspect]
     Active Substance: SERTRALINE HYDROCHLORIDE
     Dosage: 100 MILLIGRAM DAILY;
  6. TIVOZANIB [Concomitant]
     Active Substance: TIVOZANIB
     Dosage: 1340 MILLIGRAM DAILY; FOR 21 DAYS THEN 7 DAY BREAK.

REACTIONS (3)
  - Hyponatraemia [Recovered/Resolved]
  - Dyspnoea [Unknown]
  - Confusional state [Unknown]
